FAERS Safety Report 8589846-6 (Version None)
Quarter: 2012Q3

REPORT INFORMATION
  Report Type: 
  Country: None (occurrence: None)
  Receive Date: 20120813
  Receipt Date: 20120807
  Transmission Date: 20120928
  Serious: Yes (Life-Threatening)
  Sender: FDA-Public Use
  Company Number: EC-ROCHE-1098536

PATIENT
  Age: 19 Year
  Sex: Female

DRUGS (1)
  1. AVASTIN [Suspect]
     Indication: GLIOBLASTOMA
     Route: 042

REACTIONS (5)
  - APHASIA [None]
  - PYREXIA [None]
  - ASTHENIA [None]
  - DYSPNOEA [None]
  - VOMITING [None]
